FAERS Safety Report 20069191 (Version 1)
Quarter: 2021Q4

REPORT INFORMATION
  Report Type: Spontaneous
  Country: US (occurrence: None)
  Receive Date: 20211115
  Receipt Date: 20211115
  Transmission Date: 20220304
  Serious: Yes (Death)
  Sender: FDA-Public Use
  Company Number: 2021A805598

PATIENT
  Age: 36326 Day
  Sex: Female
  Weight: 38.6 kg

DRUGS (1)
  1. TAGRISSO [Suspect]
     Active Substance: OSIMERTINIB
     Indication: Lung neoplasm malignant
     Route: 048
     Dates: end: 20211031

REACTIONS (1)
  - Death [Fatal]

NARRATIVE: CASE EVENT DATE: 20211104
